FAERS Safety Report 5165378-2 (Version None)
Quarter: 2006Q4

REPORT INFORMATION
  Report Type: 
  Country: None (occurrence: None)
  Receive Date: 20061128
  Receipt Date: 20061116
  Transmission Date: 20070319
  Serious: Yes (Hospitalization, Other)
  Sender: FDA-Public Use
  Company Number: 2006131921

PATIENT
  Age: 73 Year
  Sex: Female
  Weight: 58 kg

DRUGS (7)
  1. LIPITOR [Suspect]
     Indication: HYPERCHOLESTEROLAEMIA
     Dosage: 10 MG, (10 MG, 1 IN 1 D), ORAL
     Route: 048
     Dates: end: 20061009
  2. NORVASC [Suspect]
     Indication: HYPERTENSION
     Dosage: 5 MG (5 MG, FREQUENCY:  QD), ORAL
     Route: 048
     Dates: end: 20061023
  3. FLOMOX (CEFCAPENE PIVOXIL HYDROCHLORIDE) [Suspect]
     Indication: PYREXIA
     Dosage: ORAL
     Route: 048
     Dates: start: 20061001, end: 20061009
  4. MUCOSOLVAN (AMBROXOL HYDROCHLORIDE) [Suspect]
     Indication: PYREXIA
     Dosage: ORAL
     Route: 048
     Dates: start: 20061001, end: 20061009
  5. CALONAL (PARACETAMOL) [Suspect]
     Indication: PYREXIA
     Dosage: ORAL
     Route: 048
     Dates: start: 20061001, end: 20061009
  6. FOSMICIN S (FOSFOMYCIN SODIUM) [Suspect]
     Indication: PYREXIA
     Dosage: INTRAVENOUS
     Route: 042
     Dates: start: 20061001, end: 20061009
  7. DRUG (DRUG) [Concomitant]

REACTIONS (12)
  - BILIARY CIRRHOSIS [None]
  - CHOLECYSTITIS [None]
  - CHOLELITHIASIS [None]
  - CHRONIC HEPATITIS [None]
  - CONDITION AGGRAVATED [None]
  - HEPATIC FIBROSIS [None]
  - HEPATIC STEATOSIS [None]
  - JAUNDICE CHOLESTATIC [None]
  - LIVER DISORDER [None]
  - THERAPY NON-RESPONDER [None]
  - UPPER RESPIRATORY TRACT INFLAMMATION [None]
  - VIRAL INFECTION [None]
